FAERS Safety Report 17094189 (Version 3)
Quarter: 2020Q1

REPORT INFORMATION
  Report Type: Spontaneous
  Country: CZ (occurrence: CZ)
  Receive Date: 20191129
  Receipt Date: 20200225
  Transmission Date: 20200409
  Serious: Yes (Life-Threatening, Hospitalization)
  Sender: FDA-Public Use
  Company Number: NVSC2019CZ052729

PATIENT
  Age: 7 Year
  Sex: Female
  Weight: 38 kg

DRUGS (5)
  1. ILARIS [Suspect]
     Active Substance: CANAKINUMAB
     Indication: TUMOUR NECROSIS FACTOR RECEPTOR-ASSOCIATED PERIODIC SYNDROME
     Dosage: 150 MG, Q4W
     Route: 058
     Dates: start: 20190308, end: 20191003
  2. PREDNISONE. [Concomitant]
     Active Substance: PREDNISONE
     Indication: TUMOUR NECROSIS FACTOR RECEPTOR-ASSOCIATED PERIODIC SYNDROME
  3. PREDNISONE. [Concomitant]
     Active Substance: PREDNISONE
     Indication: STILL^S DISEASE
     Dosage: 2.5 MG, QD
     Route: 048
     Dates: start: 20170227, end: 20191105
  4. ILARIS [Suspect]
     Active Substance: CANAKINUMAB
     Indication: STILL^S DISEASE
  5. METHOTREXATE. [Concomitant]
     Active Substance: METHOTREXATE
     Indication: STILL^S DISEASE
     Dosage: 100 MG, QW
     Route: 048
     Dates: start: 20180108, end: 20191010

REACTIONS (12)
  - Hepatitis [Recovering/Resolving]
  - Nervous system disorder [Unknown]
  - Haemophagocytic lymphohistiocytosis [Recovered/Resolved]
  - Cardiac failure [Recovering/Resolving]
  - Fluid retention [Recovering/Resolving]
  - Hepatomegaly [Unknown]
  - Mast cell activation syndrome [Recovering/Resolving]
  - Parvovirus infection [Unknown]
  - Splenomegaly [Unknown]
  - Encephalopathy [Recovering/Resolving]
  - Pyrexia [Unknown]
  - Lymphadenopathy [Unknown]

NARRATIVE: CASE EVENT DATE: 20191016
